FAERS Safety Report 18041031 (Version 1)
Quarter: 2020Q3

REPORT INFORMATION
  Report Type: Spontaneous
  Country: US (occurrence: US)
  Receive Date: 20200718
  Receipt Date: 20200718
  Transmission Date: 20201103
  Serious: No
  Sender: FDA-Public Use
  Company Number: US-GALDERMA-US2020029696

PATIENT
  Age: 29 Year
  Sex: Female

DRUGS (2)
  1. ADAPALENE AND BENZOYL PEROXIDE GEL, 0.1%/2.5% [Suspect]
     Active Substance: ADAPALENE\BENZOYL PEROXIDE
     Indication: PRODUCT USED FOR UNKNOWN INDICATION
     Dosage: 0.1/2.5%
     Route: 061
  2. ADAPALENE GEL, 0.3% [Suspect]
     Active Substance: ADAPALENE
     Indication: PRODUCT USED FOR UNKNOWN INDICATION
     Dosage: 0.3%
     Route: 061
     Dates: start: 201611, end: 202006

REACTIONS (2)
  - Rash [Not Recovered/Not Resolved]
  - Expired product administered [Recovered/Resolved]

NARRATIVE: CASE EVENT DATE: 201611
